FAERS Safety Report 5519941-7 (Version None)
Quarter: 2007Q4

REPORT INFORMATION
  Report Type: 
  Country: None (occurrence: None)
  Receive Date: 20071116
  Receipt Date: 20071107
  Transmission Date: 20080405
  Serious: Yes (Hospitalization)
  Sender: FDA-Public Use
  Company Number: SG-ASTRAZENECA-2007AP07068

PATIENT
  Age: 19736 Day
  Sex: Male
  Weight: 49.1 kg

DRUGS (8)
  1. IRESSA [Suspect]
     Indication: SQUAMOUS CELL CARCINOMA
     Route: 048
     Dates: start: 20061023, end: 20061210
  2. CISPLATIN [Suspect]
     Indication: SQUAMOUS CELL CARCINOMA
     Dosage: GIVEN ON DAYS 1 TO 4 OF WEEK 1.4 + 7 OF RADIOTHERAPY
     Route: 042
     Dates: start: 20061114, end: 20061117
  3. CISPLATIN [Suspect]
     Dosage: GIVEN ON DAYS 1 TO 4 OF WEEK 1.4 + 7 OF RADIOTHERAPY
     Route: 042
     Dates: start: 20061205, end: 20061208
  4. RADIOTHERAPY [Suspect]
     Indication: SQUAMOUS CELL CARCINOMA
     Dosage: TOTAL DOSE OF 90GY OVER 7 WEEKS
     Dates: start: 20061114, end: 20070112
  5. METFORMIN HCL [Concomitant]
     Indication: DIABETES MELLITUS
     Route: 048
     Dates: start: 20060101
  6. NIFEDIPINE [Concomitant]
     Indication: HYPERTENSION
     Route: 048
     Dates: start: 20060101, end: 20061217
  7. SIMVASTATIN [Concomitant]
     Indication: ACUTE MYOCARDIAL INFARCTION
     Route: 048
     Dates: start: 20061210
  8. OMEPRAZOLE [Concomitant]
     Indication: ACUTE MYOCARDIAL INFARCTION
     Route: 048
     Dates: start: 20061210

REACTIONS (1)
  - GASTROENTERITIS [None]
